FAERS Safety Report 18353276 (Version 3)
Quarter: 2020Q4

REPORT INFORMATION
  Report Type: Spontaneous
  Country: JP (occurrence: JP)
  Receive Date: 20201007
  Receipt Date: 20201231
  Transmission Date: 20210114
  Serious: Yes (Other)
  Sender: FDA-Public Use
  Company Number: JP-AMGEN-JPNSP2020152659

PATIENT
  Sex: Female

DRUGS (1)
  1. ENBREL [Suspect]
     Active Substance: ETANERCEPT
     Indication: PRODUCT USED FOR UNKNOWN INDICATION
     Dosage: UNK
     Route: 058

REACTIONS (7)
  - Incorrect dose administered [Unknown]
  - Device use error [Unknown]
  - Injury associated with device [Unknown]
  - Limb injury [Unknown]
  - Peripheral swelling [Unknown]
  - Paraesthesia [Unknown]
  - Injection site haemorrhage [Unknown]
